FAERS Safety Report 4379769-0 (Version None)
Quarter: 2004Q2

REPORT INFORMATION
  Report Type: 
  Country: None (occurrence: None)
  Receive Date: 20040617
  Receipt Date: 20040613
  Transmission Date: 20050107
  Serious: Yes (Other)
  Sender: FDA-Public Use
  Company Number: JP-JNJFOC-20040603713

PATIENT
  Age: 67 Year
  Sex: Male

DRUGS (2)
  1. ITRIZOLE [Suspect]
     Indication: ONYCHOMYCOSIS
     Route: 049
  2. ITRIZOLE [Suspect]
     Indication: TINEA PEDIS
     Route: 049

REACTIONS (1)
  - ERYTHEMA MULTIFORME [None]
